FAERS Safety Report 18371713 (Version 9)
Quarter: 2022Q3

REPORT INFORMATION
  Report Type: Spontaneous
  Country: US (occurrence: US)
  Receive Date: 20201012
  Receipt Date: 20220907
  Transmission Date: 20221027
  Serious: No
  Sender: FDA-Public Use
  Company Number: US-PFIZER INC-2020391691

PATIENT
  Age: 51 Year
  Sex: Female

DRUGS (3)
  1. XELJANZ XR [Suspect]
     Active Substance: TOFACITINIB CITRATE
     Indication: Rheumatoid arthritis
     Dosage: 11 MG, DAILY
     Route: 048
     Dates: start: 202008
  2. XELJANZ XR [Suspect]
     Active Substance: TOFACITINIB CITRATE
     Dosage: 11 MG, ALTERNATE DAY
     Route: 048
     Dates: start: 202008
  3. XELJANZ XR [Suspect]
     Active Substance: TOFACITINIB CITRATE
     Dosage: 11 MG, ALTERNATE DAY
     Route: 048
     Dates: start: 20220126

REACTIONS (12)
  - Diarrhoea [Recovered/Resolved]
  - Product dose omission issue [Unknown]
  - Musculoskeletal stiffness [Unknown]
  - Gastric disorder [Recovering/Resolving]
  - Depressed mood [Unknown]
  - Condition aggravated [Unknown]
  - Pain in extremity [Unknown]
  - Arthralgia [Unknown]
  - Influenza [Recovered/Resolved]
  - Upper respiratory tract infection [Recovered/Resolved]
  - Pain in extremity [Recovered/Resolved]
  - Arthralgia [Recovered/Resolved]

NARRATIVE: CASE EVENT DATE: 20210101
